FAERS Safety Report 18163369 (Version 1)
Quarter: 2020Q3

REPORT INFORMATION
  Report Type: Spontaneous
  Country: US (occurrence: US)
  Receive Date: 20200818
  Receipt Date: 20200818
  Transmission Date: 20201103
  Serious: No
  Sender: FDA-Public Use
  Company Number: US-ASTRAZENECA-2020SF01650

PATIENT
  Age: 1163 Month
  Sex: Female
  Weight: 53.1 kg

DRUGS (3)
  1. ZOLOFT [Concomitant]
     Active Substance: SERTRALINE HYDROCHLORIDE
     Route: 065
     Dates: start: 202002
  2. RISPERIDONE. [Concomitant]
     Active Substance: RISPERIDONE
     Indication: ANTIPSYCHOTIC DRUG LEVEL
     Dosage: .25 ML IN MORNING AND 0.5 IN EVENING
     Route: 065
     Dates: start: 201912
  3. QUETIAPINE FUMARATE. [Suspect]
     Active Substance: QUETIAPINE FUMARATE
     Indication: SCHIZOPHRENIA
     Route: 048
     Dates: start: 2019

REACTIONS (3)
  - Intentional product misuse [Unknown]
  - Therapeutic product effect increased [Unknown]
  - Wrong technique in product usage process [Unknown]

NARRATIVE: CASE EVENT DATE: 201912
